FAERS Safety Report 9649252 (Version 3)
Quarter: 2014Q4

REPORT INFORMATION
  Report Type: Spontaneous
  Country: US (occurrence: US)
  Receive Date: 20131028
  Receipt Date: 20141111
  Transmission Date: 20150529
  Serious: Yes (Hospitalization, Other)
  Sender: FDA-Public Use
  Company Number: US-GLAXOSMITHKLINE-A1046993A

PATIENT
  Sex: Female

DRUGS (4)
  1. COREG CR [Suspect]
     Active Substance: CARVEDILOL PHOSPHATE
     Indication: HAEMOCHROMATOSIS
  2. COREG CR [Suspect]
     Active Substance: CARVEDILOL PHOSPHATE
     Indication: CARDIOMYOPATHY
  3. CARVEDILOL. [Suspect]
     Active Substance: CARVEDILOL
     Indication: CARDIOMYOPATHY
     Route: 065
  4. COREG CR [Suspect]
     Active Substance: CARVEDILOL PHOSPHATE
     Indication: CARDIAC FAILURE
     Dosage: 20 MG, UNKNOWN DOSING
     Route: 065

REACTIONS (9)
  - Fatigue [Unknown]
  - Craniotomy [Unknown]
  - Drug effect decreased [Unknown]
  - Suffocation feeling [Unknown]
  - Meningioma [Unknown]
  - Hospitalisation [Unknown]
  - Hypotension [Unknown]
  - Angina pectoris [Unknown]
  - Nightmare [Unknown]
